FAERS Safety Report 6362112-5 (Version None)
Quarter: 2009Q3

REPORT INFORMATION
  Report Type: 
  Country: None (occurrence: None)
  Receive Date: 20090918
  Receipt Date: 20090910
  Transmission Date: 20100115
  Serious: Yes (Hospitalization)
  Sender: FDA-Public Use
  Company Number: IN-ELI_LILLY_AND_COMPANY-IN200906000723

PATIENT
  Age: 60 Year
  Sex: Female

DRUGS (3)
  1. HUMALOG [Suspect]
     Indication: TYPE 2 DIABETES MELLITUS
     Dosage: UNK UNK, 3/D
     Route: 058
     Dates: start: 20090530
  2. LANTUS [Concomitant]
     Dosage: UNK, DAILY (1/D)
     Route: 058
     Dates: start: 20090530
  3. NOVORAPID [Concomitant]
     Dosage: UNK, UNKNOWN
     Route: 065
     Dates: end: 20090530

REACTIONS (1)
  - DIABETES MELLITUS INADEQUATE CONTROL [None]
